FAERS Safety Report 18779494 (Version 2)
Quarter: 2021Q1

REPORT INFORMATION
  Report Type: Spontaneous
  Country: NO (occurrence: NO)
  Receive Date: 20210125
  Receipt Date: 20210129
  Transmission Date: 20210419
  Serious: Yes (Death, Other)
  Sender: FDA-Public Use
  Company Number: NO-AMGEN-NORSP2021008781

PATIENT
  Age: 68 Year
  Sex: Male

DRUGS (3)
  1. FOLFIRI BEVACIZUMAB [Concomitant]
     Indication: METASTASES TO BONE
     Dosage: UNK
  2. XGEVA [Suspect]
     Active Substance: DENOSUMAB
     Indication: HYPERCALCAEMIA OF MALIGNANCY
     Dosage: 120 MILLIGRAM
     Route: 058
  3. XGEVA [Suspect]
     Active Substance: DENOSUMAB
     Indication: METASTASES TO BONE

REACTIONS (3)
  - Blood parathyroid hormone increased [Recovered/Resolved]
  - Metastatic neoplasm [Fatal]
  - Hypercalcaemia [Recovered/Resolved]
